FAERS Safety Report 8058590-6 (Version None)
Quarter: 2012Q1

REPORT INFORMATION
  Report Type: 
  Country: None (occurrence: None)
  Receive Date: 20120120
  Receipt Date: 20120106
  Transmission Date: 20120608
  Serious: Yes (Other)
  Sender: FDA-Public Use
  Company Number: US-MYLANLABS-2012S1000700

PATIENT
  Age: 15 Year
  Sex: Female

DRUGS (2)
  1. BISACODYL [Suspect]
     Indication: BOWEL PREPARATION
     Route: 065
  2. PEG 3350 AND ELECTROLYTES [Suspect]
     Indication: BOWEL PREPARATION
     Dosage: 527G MIXED IN 64OZ OF A SPORTS DRINK
     Route: 065

REACTIONS (1)
  - OESOPHAGITIS [None]
